FAERS Safety Report 25837486 (Version 1)
Quarter: 2025Q3

REPORT INFORMATION
  Report Type: Spontaneous
  Country: US (occurrence: US)
  Receive Date: 20250923
  Receipt Date: 20250923
  Transmission Date: 20251021
  Serious: No
  Sender: INSUD PHARMA
  Company Number: US-INSUD PHARMA-2509US07429

PATIENT

DRUGS (7)
  1. PROGESTERONE [Suspect]
     Active Substance: PROGESTERONE
     Indication: Menopause
     Dosage: ONE CAPSULE DAILY AT BEDTIME, 6 DAYS A WEEK
     Route: 048
     Dates: start: 20250826, end: 202508
  2. PROGESTERONE [Suspect]
     Active Substance: PROGESTERONE
     Indication: Insomnia
  3. HERBAL NOS [Concomitant]
     Active Substance: HERBALS
  4. HERBALS\MELISSA OFFICINALIS [Concomitant]
     Active Substance: HERBALS\MELISSA OFFICINALIS
  5. VITAMIN B12 [Concomitant]
     Active Substance: CYANOCOBALAMIN
  6. ASHWAGANDHA ROOT [Concomitant]
  7. BENADRYL [Concomitant]
     Active Substance: DIPHENHYDRAMINE HYDROCHLORIDE
     Indication: Insomnia

REACTIONS (8)
  - Paraesthesia oral [Recovering/Resolving]
  - Oral pruritus [Recovering/Resolving]
  - Lip dry [Recovering/Resolving]
  - Chapped lips [Recovering/Resolving]
  - Lip exfoliation [Recovering/Resolving]
  - Lip disorder [Recovering/Resolving]
  - Cheilitis [Recovering/Resolving]
  - Product prescribing issue [Unknown]

NARRATIVE: CASE EVENT DATE: 20250826
